FAERS Safety Report 25654073 (Version 1)
Quarter: 2025Q3

REPORT INFORMATION
  Report Type: Spontaneous
  Country: US (occurrence: US)
  Receive Date: 20250807
  Receipt Date: 20250807
  Transmission Date: 20251021
  Serious: Yes (Other)
  Sender: MYLAN
  Company Number: US-MYLANLABS-2025M1064367

PATIENT
  Age: 25 Year
  Sex: Female

DRUGS (94)
  1. CETIRIZINE [Suspect]
     Active Substance: CETIRIZINE HYDROCHLORIDE
     Indication: Premedication
  2. CETIRIZINE [Suspect]
     Active Substance: CETIRIZINE HYDROCHLORIDE
     Indication: Prophylaxis
     Route: 065
  3. CETIRIZINE [Suspect]
     Active Substance: CETIRIZINE HYDROCHLORIDE
     Route: 065
  4. CETIRIZINE [Suspect]
     Active Substance: CETIRIZINE HYDROCHLORIDE
  5. FAMOTIDINE [Suspect]
     Active Substance: FAMOTIDINE
     Indication: Premedication
  6. FAMOTIDINE [Suspect]
     Active Substance: FAMOTIDINE
     Indication: Prophylaxis
  7. FAMOTIDINE [Suspect]
     Active Substance: FAMOTIDINE
     Route: 065
  8. FAMOTIDINE [Suspect]
     Active Substance: FAMOTIDINE
     Route: 065
  9. FAMOTIDINE [Suspect]
     Active Substance: FAMOTIDINE
  10. FAMOTIDINE [Suspect]
     Active Substance: FAMOTIDINE
  11. FAMOTIDINE [Suspect]
     Active Substance: FAMOTIDINE
     Route: 065
  12. FAMOTIDINE [Suspect]
     Active Substance: FAMOTIDINE
     Route: 065
  13. PREDNISONE [Suspect]
     Active Substance: PREDNISONE
     Indication: Premedication
  14. PREDNISONE [Suspect]
     Active Substance: PREDNISONE
     Indication: Prophylaxis
  15. PREDNISONE [Suspect]
     Active Substance: PREDNISONE
     Route: 065
  16. PREDNISONE [Suspect]
     Active Substance: PREDNISONE
     Route: 065
  17. PREDNISONE [Suspect]
     Active Substance: PREDNISONE
  18. PREDNISONE [Suspect]
     Active Substance: PREDNISONE
  19. PREDNISONE [Suspect]
     Active Substance: PREDNISONE
     Route: 065
  20. PREDNISONE [Suspect]
     Active Substance: PREDNISONE
     Route: 065
  21. DIPHENHYDRAMINE [Suspect]
     Active Substance: DIPHENHYDRAMINE
     Indication: Premedication
  22. DIPHENHYDRAMINE [Suspect]
     Active Substance: DIPHENHYDRAMINE
     Indication: Prophylaxis
  23. DIPHENHYDRAMINE [Suspect]
     Active Substance: DIPHENHYDRAMINE
     Indication: Rash pruritic
     Route: 065
  24. DIPHENHYDRAMINE [Suspect]
     Active Substance: DIPHENHYDRAMINE
     Indication: Pruritus
     Route: 065
  25. DIPHENHYDRAMINE [Suspect]
     Active Substance: DIPHENHYDRAMINE
  26. DIPHENHYDRAMINE [Suspect]
     Active Substance: DIPHENHYDRAMINE
  27. DIPHENHYDRAMINE [Suspect]
     Active Substance: DIPHENHYDRAMINE
     Route: 065
  28. DIPHENHYDRAMINE [Suspect]
     Active Substance: DIPHENHYDRAMINE
     Route: 065
  29. TEMOZOLOMIDE [Concomitant]
     Active Substance: TEMOZOLOMIDE
     Indication: Glioblastoma
     Route: 065
  30. TEMOZOLOMIDE [Concomitant]
     Active Substance: TEMOZOLOMIDE
  31. TEMOZOLOMIDE [Concomitant]
     Active Substance: TEMOZOLOMIDE
  32. TEMOZOLOMIDE [Concomitant]
     Active Substance: TEMOZOLOMIDE
     Route: 065
  33. TEMOZOLOMIDE [Concomitant]
     Active Substance: TEMOZOLOMIDE
     Dosage: 280 MILLIGRAM, QD (MAINTENANCE THERAPY 150?MG/M2, ON DAYS 1-5 OF A 28-DAY CYCLE FOR CYCLE?1)
  34. TEMOZOLOMIDE [Concomitant]
     Active Substance: TEMOZOLOMIDE
     Dosage: 280 MILLIGRAM, QD (MAINTENANCE THERAPY 150?MG/M2, ON DAYS 1-5 OF A 28-DAY CYCLE FOR CYCLE?1)
  35. TEMOZOLOMIDE [Concomitant]
     Active Substance: TEMOZOLOMIDE
     Dosage: 280 MILLIGRAM, QD (MAINTENANCE THERAPY 150?MG/M2, ON DAYS 1-5 OF A 28-DAY CYCLE FOR CYCLE?1)
     Route: 065
  36. TEMOZOLOMIDE [Concomitant]
     Active Substance: TEMOZOLOMIDE
     Dosage: 280 MILLIGRAM, QD (MAINTENANCE THERAPY 150?MG/M2, ON DAYS 1-5 OF A 28-DAY CYCLE FOR CYCLE?1)
     Route: 065
  37. TEMOZOLOMIDE [Concomitant]
     Active Substance: TEMOZOLOMIDE
     Dosage: 360 MILLIGRAM, QD (MAINTENANCE THERAPY 200?MG/M2, ON DAYS 1-5 FOR CYCLE?2 AND SUBSEQUENT CYCLES)
     Route: 065
  38. TEMOZOLOMIDE [Concomitant]
     Active Substance: TEMOZOLOMIDE
     Dosage: 360 MILLIGRAM, QD (MAINTENANCE THERAPY 200?MG/M2, ON DAYS 1-5 FOR CYCLE?2 AND SUBSEQUENT CYCLES)
  39. TEMOZOLOMIDE [Concomitant]
     Active Substance: TEMOZOLOMIDE
     Dosage: 360 MILLIGRAM, QD (MAINTENANCE THERAPY 200?MG/M2, ON DAYS 1-5 FOR CYCLE?2 AND SUBSEQUENT CYCLES)
  40. TEMOZOLOMIDE [Concomitant]
     Active Substance: TEMOZOLOMIDE
     Dosage: 360 MILLIGRAM, QD (MAINTENANCE THERAPY 200?MG/M2, ON DAYS 1-5 FOR CYCLE?2 AND SUBSEQUENT CYCLES)
     Route: 065
  41. TEMOZOLOMIDE [Concomitant]
     Active Substance: TEMOZOLOMIDE
     Dosage: 100 MILLIGRAM, QD (ON DAYS 1-21 OF A 28-DAY CYCLE)
  42. TEMOZOLOMIDE [Concomitant]
     Active Substance: TEMOZOLOMIDE
     Dosage: 100 MILLIGRAM, QD (ON DAYS 1-21 OF A 28-DAY CYCLE)
  43. TEMOZOLOMIDE [Concomitant]
     Active Substance: TEMOZOLOMIDE
     Dosage: 100 MILLIGRAM, QD (ON DAYS 1-21 OF A 28-DAY CYCLE)
     Route: 048
  44. TEMOZOLOMIDE [Concomitant]
     Active Substance: TEMOZOLOMIDE
     Dosage: 100 MILLIGRAM, QD (ON DAYS 1-21 OF A 28-DAY CYCLE)
     Route: 048
  45. TEMOZOLOMIDE [Concomitant]
     Active Substance: TEMOZOLOMIDE
  46. TEMOZOLOMIDE [Concomitant]
     Active Substance: TEMOZOLOMIDE
  47. TEMOZOLOMIDE [Concomitant]
     Active Substance: TEMOZOLOMIDE
     Route: 065
  48. TEMOZOLOMIDE [Concomitant]
     Active Substance: TEMOZOLOMIDE
     Route: 065
  49. TEMOZOLOMIDE [Concomitant]
     Active Substance: TEMOZOLOMIDE
  50. TEMOZOLOMIDE [Concomitant]
     Active Substance: TEMOZOLOMIDE
     Route: 065
  51. TEMOZOLOMIDE [Concomitant]
     Active Substance: TEMOZOLOMIDE
  52. TEMOZOLOMIDE [Concomitant]
     Active Substance: TEMOZOLOMIDE
     Route: 065
  53. TEMOZOLOMIDE [Concomitant]
     Active Substance: TEMOZOLOMIDE
     Indication: Glioblastoma
  54. TEMOZOLOMIDE [Concomitant]
     Active Substance: TEMOZOLOMIDE
  55. TEMOZOLOMIDE [Concomitant]
     Active Substance: TEMOZOLOMIDE
     Route: 065
  56. TEMOZOLOMIDE [Concomitant]
     Active Substance: TEMOZOLOMIDE
     Route: 065
  57. TEMOZOLOMIDE [Concomitant]
     Active Substance: TEMOZOLOMIDE
  58. TEMOZOLOMIDE [Concomitant]
     Active Substance: TEMOZOLOMIDE
  59. TEMOZOLOMIDE [Concomitant]
     Active Substance: TEMOZOLOMIDE
     Route: 065
  60. TEMOZOLOMIDE [Concomitant]
     Active Substance: TEMOZOLOMIDE
     Route: 065
  61. TEMOZOLOMIDE [Concomitant]
     Active Substance: TEMOZOLOMIDE
     Indication: Glioblastoma
     Route: 065
  62. TEMOZOLOMIDE [Concomitant]
     Active Substance: TEMOZOLOMIDE
  63. TEMOZOLOMIDE [Concomitant]
     Active Substance: TEMOZOLOMIDE
  64. TEMOZOLOMIDE [Concomitant]
     Active Substance: TEMOZOLOMIDE
     Route: 065
  65. TEMOZOLOMIDE [Concomitant]
     Active Substance: TEMOZOLOMIDE
     Route: 065
  66. TEMOZOLOMIDE [Concomitant]
     Active Substance: TEMOZOLOMIDE
  67. TEMOZOLOMIDE [Concomitant]
     Active Substance: TEMOZOLOMIDE
  68. TEMOZOLOMIDE [Concomitant]
     Active Substance: TEMOZOLOMIDE
     Route: 065
  69. TEMOZOLOMIDE [Concomitant]
     Active Substance: TEMOZOLOMIDE
  70. TEMOZOLOMIDE [Concomitant]
     Active Substance: TEMOZOLOMIDE
  71. TEMOZOLOMIDE [Concomitant]
     Active Substance: TEMOZOLOMIDE
     Route: 065
  72. TEMOZOLOMIDE [Concomitant]
     Active Substance: TEMOZOLOMIDE
     Route: 065
  73. TEMOZOLOMIDE [Concomitant]
     Active Substance: TEMOZOLOMIDE
  74. TEMOZOLOMIDE [Concomitant]
     Active Substance: TEMOZOLOMIDE
  75. TEMOZOLOMIDE [Concomitant]
     Active Substance: TEMOZOLOMIDE
     Route: 065
  76. TEMOZOLOMIDE [Concomitant]
     Active Substance: TEMOZOLOMIDE
     Route: 065
  77. TEMOZOLOMIDE [Concomitant]
     Active Substance: TEMOZOLOMIDE
     Indication: Glioblastoma
  78. TEMOZOLOMIDE [Concomitant]
     Active Substance: TEMOZOLOMIDE
     Route: 065
  79. TEMOZOLOMIDE [Concomitant]
     Active Substance: TEMOZOLOMIDE
     Route: 065
  80. TEMOZOLOMIDE [Concomitant]
     Active Substance: TEMOZOLOMIDE
  81. HYDROXYZINE [Concomitant]
     Active Substance: HYDROXYZINE HYDROCHLORIDE
     Indication: Pruritus
  82. HYDROXYZINE [Concomitant]
     Active Substance: HYDROXYZINE HYDROCHLORIDE
     Indication: Erythema
     Route: 065
  83. HYDROXYZINE [Concomitant]
     Active Substance: HYDROXYZINE HYDROCHLORIDE
     Indication: Dermatitis allergic
     Route: 065
  84. HYDROXYZINE [Concomitant]
     Active Substance: HYDROXYZINE HYDROCHLORIDE
     Indication: Urticaria
  85. HYDROXYZINE [Concomitant]
     Active Substance: HYDROXYZINE HYDROCHLORIDE
     Indication: Skin lesion
  86. HYDROXYZINE [Concomitant]
     Active Substance: HYDROXYZINE HYDROCHLORIDE
     Indication: Rash
  87. HYDROCORTISONE [Concomitant]
     Active Substance: HYDROCORTISONE
     Indication: Rash pruritic
  88. HYDROCORTISONE [Concomitant]
     Active Substance: HYDROCORTISONE
     Indication: Pruritus
     Route: 065
  89. HYDROCORTISONE [Concomitant]
     Active Substance: HYDROCORTISONE
     Route: 065
  90. HYDROCORTISONE [Concomitant]
     Active Substance: HYDROCORTISONE
  91. ONDANSETRON [Concomitant]
     Active Substance: ONDANSETRON
     Indication: Rash pruritic
  92. ONDANSETRON [Concomitant]
     Active Substance: ONDANSETRON
     Indication: Pruritus
     Route: 065
  93. ONDANSETRON [Concomitant]
     Active Substance: ONDANSETRON
     Route: 065
  94. ONDANSETRON [Concomitant]
     Active Substance: ONDANSETRON

REACTIONS (1)
  - Drug ineffective [Unknown]
